FAERS Safety Report 20748871 (Version 2)
Quarter: 2022Q2

REPORT INFORMATION
  Report Type: Spontaneous
  Country: GB (occurrence: GB)
  Receive Date: 20220426
  Receipt Date: 20220524
  Transmission Date: 20220721
  Serious: Yes (Other)
  Sender: FDA-Public Use
  Company Number: GB-ENDO PHARMACEUTICALS INC-2022-002720

PATIENT
  Age: 75 Year
  Sex: Male

DRUGS (4)
  1. EDEX [Suspect]
     Active Substance: ALPROSTADIL
     Indication: Prostate tenderness
     Dosage: UNK, UNKNOWN (NUMBER OF UNITS INVOLVED-ONE)
     Route: 065
     Dates: start: 20220408
  2. EDEX [Suspect]
     Active Substance: ALPROSTADIL
     Indication: Prostate tenderness
     Dosage: UNK, UNKNOWN (NUMBER OF UNITS INVOLVED-ONE)
     Route: 065
     Dates: start: 20220408
  3. EDEX [Suspect]
     Active Substance: ALPROSTADIL
     Indication: Prostate tenderness
     Dosage: UNK, UNKNOWN (NUMBER OF UNITS INVOLVED-ONE)
     Route: 065
     Dates: start: 20220408
  4. EDEX [Suspect]
     Active Substance: ALPROSTADIL
     Indication: Prostate tenderness
     Dosage: UNK, UNKNOWN (NUMBER OF UNITS INVOLVED-ONE)
     Route: 065
     Dates: start: 20220408

REACTIONS (3)
  - Injury associated with device [Recovered/Resolved]
  - Injection site pain [Recovered/Resolved]
  - Device leakage [Unknown]

NARRATIVE: CASE EVENT DATE: 20220401
